FAERS Safety Report 9709357 (Version 1)
Quarter: 2013Q4

REPORT INFORMATION
  Report Type: Spontaneous
  Country: US (occurrence: US)
  Receive Date: 20131126
  Receipt Date: 20131126
  Transmission Date: 20140711
  Serious: Yes (Other)
  Sender: FDA-Public Use
  Company Number: US-ASTRAZENECA-2013SE85287

PATIENT
  Age: 77 Year
  Sex: Female
  Weight: 66.2 kg

DRUGS (1)
  1. SYMBICORT [Suspect]
     Dosage: 160 4.5 MCG, UNKNOWN
     Route: 055

REACTIONS (2)
  - Neoplasm malignant [Unknown]
  - Respiratory rate decreased [Unknown]
